FAERS Safety Report 9027329 (Version 2)
Quarter: 2013Q2

REPORT INFORMATION
  Report Type: Spontaneous
  Country: FR (occurrence: FR)
  Receive Date: 20130123
  Receipt Date: 20130522
  Transmission Date: 20140414
  Serious: Yes (Hospitalization, Other)
  Sender: FDA-Public Use
  Company Number: FR-B.I. PHARMACEUTICALS,INC./RIDGEFIELD-2013-FF-00159FF

PATIENT
  Sex: Female

DRUGS (5)
  1. PRADAXA [Suspect]
     Indication: ATRIAL FIBRILLATION
     Dosage: 220 MG
     Route: 048
     Dates: start: 201209, end: 201301
  2. LEVOTHYROX [Concomitant]
  3. NEBIVOLOL [Concomitant]
  4. ALTEISDUO [Concomitant]
  5. ZANIDIP [Concomitant]

REACTIONS (5)
  - Knee arthroplasty [Recovered/Resolved]
  - Transaminases increased [Unknown]
  - Gamma-glutamyltransferase increased [Unknown]
  - Biliary neoplasm [Unknown]
  - Cholelithiasis [Unknown]
